FAERS Safety Report 7583817-4 (Version None)
Quarter: 2011Q2

REPORT INFORMATION
  Report Type: 
  Country: None (occurrence: None)
  Receive Date: 20110630
  Receipt Date: 20110623
  Transmission Date: 20111010
  Serious: Yes (Hospitalization)
  Sender: FDA-Public Use
  Company Number: IT-ROCHE-785203

PATIENT
  Sex: Male

DRUGS (8)
  1. EZETIMIBE [Concomitant]
  2. CELLCEPT [Suspect]
     Dosage: FREQUENCY:OD
     Route: 048
     Dates: start: 20030201, end: 20071006
  3. AMIODARONE HCL [Concomitant]
  4. AMLODIPINE [Concomitant]
  5. LANSOPRAZOLE [Concomitant]
  6. CYCLOSPORINE [Suspect]
     Dosage: FREQUENCY:OD
     Route: 048
     Dates: start: 20030201, end: 20071006
  7. COUMADIN [Concomitant]
  8. PALVIX [Concomitant]

REACTIONS (1)
  - MYOCARDIAL INFARCTION [None]
